FAERS Safety Report 24122471 (Version 1)
Quarter: 2024Q3

REPORT INFORMATION
  Report Type: Spontaneous
  Country: RU (occurrence: RU)
  Receive Date: 20240723
  Receipt Date: 20240723
  Transmission Date: 20241017
  Serious: Yes (Other)
  Sender: ABBVIE
  Company Number: RU-ABBOTT-2024A-1384329

PATIENT
  Age: 52 Year
  Sex: Female
  Weight: 78 kg

DRUGS (3)
  1. PANCRELIPASE [Suspect]
     Active Substance: PANCRELIPASE
     Indication: Product used for unknown indication
     Route: 048
     Dates: start: 20231117, end: 20231120
  2. OMEPRAZOLE [Concomitant]
     Active Substance: OMEPRAZOLE
     Indication: Gastrointestinal disorder
     Route: 065
     Dates: start: 20231117, end: 20231120
  3. MEBEVERINE [Suspect]
     Active Substance: MEBEVERINE
     Indication: Product used for unknown indication
     Dosage: 1 CAPSULE 2 TIMES A DAY
     Route: 048
     Dates: start: 20231117, end: 20231120

REACTIONS (4)
  - Angioedema [Recovering/Resolving]
  - Swelling face [Unknown]
  - Swelling of eyelid [Unknown]
  - Swelling face [Unknown]

NARRATIVE: CASE EVENT DATE: 20231119
